FAERS Safety Report 8645093 (Version 6)
Quarter: 2013Q2

REPORT INFORMATION
  Report Type: Spontaneous
  Country: JP (occurrence: JP)
  Receive Date: 20120702
  Receipt Date: 20130528
  Transmission Date: 20140414
  Serious: Yes (Other)
  Sender: FDA-Public Use
  Company Number: PHHY2012JP055781

PATIENT
  Age: 48 Year
  Sex: Female

DRUGS (4)
  1. ZOMETA [Suspect]
     Indication: METASTASES TO BONE
     Dosage: UNK UKN, UNK
     Route: 041
     Dates: start: 200804, end: 201111
  2. ANTIINFECTIVES [Concomitant]
  3. DALACIN [Concomitant]
     Dosage: 450 MG, UNK
     Route: 048
     Dates: start: 20120215, end: 20120927
  4. PACLITAXEL [Concomitant]
     Dosage: UNK UKN, UNK
     Dates: start: 200811, end: 2011

REACTIONS (13)
  - Osteonecrosis of jaw [Not Recovered/Not Resolved]
  - Exposed bone in jaw [Unknown]
  - Pain in jaw [Unknown]
  - Bacterial infection [Unknown]
  - Erythema [Unknown]
  - Swelling [Unknown]
  - Gingival infection [Unknown]
  - Pain [Unknown]
  - Tenderness [Unknown]
  - Periodontitis [Unknown]
  - Abscess jaw [Unknown]
  - Paralysis [Unknown]
  - Tooth loss [Unknown]
